FAERS Safety Report 7490922-X (Version None)
Quarter: 2011Q2

REPORT INFORMATION
  Report Type: 
  Country: None (occurrence: None)
  Receive Date: 20110517
  Receipt Date: 20110517
  Transmission Date: 20111010
  Serious: Yes (Other)
  Sender: FDA-Public Use
  Company Number: None

PATIENT
  Age: 72 Year
  Sex: Female
  Weight: 100.6985 kg

DRUGS (1)
  1. XANAX [Suspect]
     Indication: ANXIETY

REACTIONS (4)
  - TREMOR [None]
  - INSOMNIA [None]
  - IRRITABILITY [None]
  - HEADACHE [None]
